FAERS Safety Report 14853504 (Version 1)
Quarter: 2018Q2

REPORT INFORMATION
  Report Type: Spontaneous
  Country: ES (occurrence: ES)
  Receive Date: 20180507
  Receipt Date: 20180507
  Transmission Date: 20180711
  Serious: Yes (Other)
  Sender: FDA-Public Use
  Company Number: PHHY2018ES055989

PATIENT
  Age: 78 Year
  Sex: Female
  Weight: 63 kg

DRUGS (2)
  1. TOUJEO [Suspect]
     Active Substance: INSULIN GLARGINE
     Indication: TYPE 2 DIABETES MELLITUS
     Dosage: 30 IU, QD
     Route: 058
     Dates: start: 20171228
  2. AMOXICILLIN. [Suspect]
     Active Substance: AMOXICILLIN
     Indication: INFLUENZA
     Dosage: 3 DF, QD
     Route: 048
     Dates: start: 201801

REACTIONS (9)
  - Pain [Not Recovered/Not Resolved]
  - Oropharyngeal pain [Not Recovered/Not Resolved]
  - Cough [Recovered/Resolved]
  - Fatigue [Recovered/Resolved]
  - Cough [Not Recovered/Not Resolved]
  - Influenza [Recovered/Resolved]
  - Hypoglycaemia [Not Recovered/Not Resolved]
  - Hyperglycaemia [Recovered/Resolved]
  - Constipation [Recovered/Resolved]

NARRATIVE: CASE EVENT DATE: 20171231
